FAERS Safety Report 13252613 (Version 7)
Quarter: 2018Q4

REPORT INFORMATION
  Report Type: Report from Study
  Country: FR (occurrence: FR)
  Receive Date: 20170220
  Receipt Date: 20181022
  Transmission Date: 20190204
  Serious: Yes (Death, Life-Threatening, Hospitalization, Other)
  Sender: FDA-Public Use
  Company Number: FR-ASTRAZENECA-2017SE18488

PATIENT
  Age: 23748 Day
  Sex: Female
  Weight: 52 kg

DRUGS (10)
  1. FASLODEX [Suspect]
     Active Substance: FULVESTRANT
     Indication: BREAST CANCER METASTATIC
     Route: 030
     Dates: start: 20170126, end: 20170126
  2. PALBOCICLIB [Suspect]
     Active Substance: PALBOCICLIB
     Indication: BREAST CANCER METASTATIC
     Route: 048
     Dates: start: 20161113
  3. EXEMESTANE. [Concomitant]
     Active Substance: EXEMESTANE
     Dates: start: 201512
  4. PALBOCICLIB [Suspect]
     Active Substance: PALBOCICLIB
     Indication: BREAST CANCER METASTATIC
     Route: 048
     Dates: start: 20170109, end: 20170124
  5. AFINITOR [Concomitant]
     Active Substance: EVEROLIMUS
     Indication: NEOPLASM PROGRESSION
     Dates: start: 201512, end: 201609
  6. PALBOCICLIB [Suspect]
     Active Substance: PALBOCICLIB
     Indication: BREAST CANCER METASTATIC
     Route: 048
     Dates: start: 20170126, end: 20170126
  7. FASLODEX [Suspect]
     Active Substance: FULVESTRANT
     Indication: BREAST CANCER METASTATIC
     Dosage: 500 MG, 1 INJECTION EVERY 4 WEEKS
     Route: 030
     Dates: start: 20161012, end: 20170126
  8. PALBOCICLIB [Suspect]
     Active Substance: PALBOCICLIB
     Indication: BREAST CANCER METASTATIC
     Route: 048
     Dates: start: 20161012, end: 20170124
  9. FASLODEX [Suspect]
     Active Substance: FULVESTRANT
     Indication: BREAST CANCER METASTATIC
     Route: 030
     Dates: start: 201405, end: 201405
  10. CORTANCYL [Concomitant]
     Active Substance: PREDNISONE

REACTIONS (14)
  - Gastrointestinal haemorrhage [Fatal]
  - Food aversion [Unknown]
  - Nausea [Unknown]
  - Aspartate aminotransferase increased [Unknown]
  - Gastric ulcer [Fatal]
  - Ascites [Unknown]
  - Vomiting [Unknown]
  - Off label use [Unknown]
  - Asthenia [Unknown]
  - Neutropenia [Recovered/Resolved]
  - General physical health deterioration [Unknown]
  - Haematemesis [Fatal]
  - Acute coronary syndrome [Fatal]
  - Alanine aminotransferase increased [Unknown]

NARRATIVE: CASE EVENT DATE: 20161024
